FAERS Safety Report 22222846 (Version 1)
Quarter: 2023Q2

REPORT INFORMATION
  Report Type: Spontaneous
  Country: US (occurrence: None)
  Receive Date: 20230417
  Receipt Date: 20230417
  Transmission Date: 20230722
  Serious: Yes (Other)
  Sender: FDA-Public Use
  Company Number: None

PATIENT
  Age: 90 Year
  Sex: Female
  Weight: 81.9 kg

DRUGS (8)
  1. BACLOFEN [Suspect]
     Active Substance: BACLOFEN
     Indication: Bone pain
     Dosage: 60 TABLETS TWICE A DAY ORAL
     Route: 048
     Dates: start: 20230410, end: 20230413
  2. BACLOFEN [Suspect]
     Active Substance: BACLOFEN
     Indication: Pain in extremity
  3. Metoprolol suck are ER 25 - one daily [Concomitant]
  4. theophylline ER 300 mg - one tablet, twice a day [Concomitant]
  5. pulmicort inhaler - 2 puffs, once a day [Concomitant]
  6. aspirin 81 mg - one daily [Concomitant]
  7. vitamin D3-400IU - one daily [Concomitant]
  8. vitamin b12 2500 mcg rapid release sublingual - one daily [Concomitant]

REACTIONS (18)
  - Dizziness [None]
  - Feeling hot [None]
  - Cold sweat [None]
  - Fear of falling [None]
  - Retching [None]
  - Hypersomnia [None]
  - Somnolence [None]
  - Dysarthria [None]
  - Incoherent [None]
  - Somnolence [None]
  - Thinking abnormal [None]
  - Hypophagia [None]
  - Peripheral coldness [None]
  - Confusional state [None]
  - Dry mouth [None]
  - Diarrhoea [None]
  - Logorrhoea [None]
  - Feeling abnormal [None]

NARRATIVE: CASE EVENT DATE: 20230410
